FAERS Safety Report 7587747-3 (Version None)
Quarter: 2011Q3

REPORT INFORMATION
  Report Type: 
  Country: None (occurrence: None)
  Receive Date: 20110704
  Receipt Date: 20110627
  Transmission Date: 20111222
  Serious: Yes (Hospitalization, Other)
  Sender: FDA-Public Use
  Company Number: FR-BRISTOL-MYERS SQUIBB COMPANY-15863137

PATIENT
  Age: 61 Year
  Sex: Male

DRUGS (7)
  1. ESCITALOPRAM OXALATE [Concomitant]
  2. ATORVASTATIN CALCIUM [Concomitant]
     Dosage: TABS
  3. OXAZEPAM [Concomitant]
     Dosage: 50MG AND 10MG TABLET
  4. ASPIRIN [Concomitant]
     Dosage: KARDEGIC 75 MG ORAL POWDER
     Route: 048
  5. LOVENOX [Suspect]
     Dates: start: 20110525, end: 20110530
  6. COUMADIN [Suspect]
     Indication: PULMONARY EMBOLISM
     Dosage: DOSE RAISED TO 2 TABS
     Route: 048
  7. HEPT-A-MYL [Concomitant]

REACTIONS (4)
  - HAEMATOMA [None]
  - ABNORMAL BEHAVIOUR [None]
  - BIPOLAR DISORDER [None]
  - SKIN NECROSIS [None]
